FAERS Safety Report 6877704-4 (Version None)
Quarter: 2010Q3

REPORT INFORMATION
  Report Type: 
  Country: None (occurrence: None)
  Receive Date: 20100727
  Receipt Date: 20100616
  Transmission Date: 20110219
  Serious: No
  Sender: FDA-Public Use
  Company Number: US-ABBOTT-10P-163-0652771-00

PATIENT
  Sex: Female
  Weight: 90.8 kg

DRUGS (1)
  1. SYNTHROID [Suspect]
     Indication: HYPOTHYROIDISM
     Dates: start: 19960101

REACTIONS (3)
  - COUGH [None]
  - DYSPHAGIA [None]
  - PRODUCT SIZE ISSUE [None]
